FAERS Safety Report 14768055 (Version 2)
Quarter: 2018Q2

REPORT INFORMATION
  Report Type: Spontaneous
  Country: IT (occurrence: IT)
  Receive Date: 20180417
  Receipt Date: 20180528
  Transmission Date: 20180711
  Serious: Yes (Other)
  Sender: FDA-Public Use
  Company Number: IT-LUPIN PHARMACEUTICALS INC.-2018-02899

PATIENT
  Age: 38 Year
  Sex: Female

DRUGS (1)
  1. CLOBETASOL PROPIONATE CREAM [Suspect]
     Active Substance: CLOBETASOL PROPIONATE
     Indication: PRODUCT USED FOR UNKNOWN INDICATION
     Dosage: 90 G, A WEEK
     Route: 065

REACTIONS (3)
  - Drug administration error [Unknown]
  - Hypothalamic pituitary adrenal axis suppression [Unknown]
  - Cushing^s syndrome [Unknown]
